FAERS Safety Report 7578586-8 (Version None)
Quarter: 2011Q2

REPORT INFORMATION
  Report Type: 
  Country: None (occurrence: None)
  Receive Date: 20110628
  Receipt Date: 20110621
  Transmission Date: 20111010
  Serious: Yes (Other)
  Sender: FDA-Public Use
  Company Number: JP-PFIZER INC-2011123871

PATIENT
  Age: 4 Year
  Sex: Female

DRUGS (2)
  1. GENOTROPIN [Suspect]
     Indication: BODY HEIGHT BELOW NORMAL
     Dosage: UNK
     Dates: start: 20090728
  2. GENOTROPIN [Suspect]
     Indication: PRADER-WILLI SYNDROME

REACTIONS (1)
  - CONVULSION [None]
